FAERS Safety Report 5121211-6 (Version None)
Quarter: 2006Q4

REPORT INFORMATION
  Report Type: 
  Country: None (occurrence: None)
  Receive Date: 20061002
  Receipt Date: 20060928
  Transmission Date: 20070319
  Serious: Yes (Other)
  Sender: FDA-Public Use
  Company Number: 148021USA

PATIENT
  Age: 86 Year
  Sex: Male

DRUGS (1)
  1. DOCUSATE [Suspect]
     Dosage: 100 MG (50 MG, 2 IN 1 D); ORAL
     Route: 048
     Dates: start: 20060801

REACTIONS (1)
  - TRANSIENT ISCHAEMIC ATTACK [None]
